FAERS Safety Report 5110161-7 (Version None)
Quarter: 2006Q3

REPORT INFORMATION
  Report Type: 
  Country: None (occurrence: None)
  Receive Date: 20060919
  Receipt Date: 20060919
  Transmission Date: 20061208
  Serious: Yes (Hospitalization)
  Sender: FDA-Public Use
  Company Number: None

PATIENT
  Age: 68 Year
  Sex: Male
  Weight: 113.3993 kg

DRUGS (2)
  1. COLCHICINE 0.6MG TABLET [Suspect]
     Indication: GOUT
     Dosage: 0.6 MG  1-2 TIMES DAILY  PO
     Route: 048
     Dates: start: 20060721, end: 20060914
  2. GEMFIBROZIL [Suspect]
     Indication: HYPERLIPIDAEMIA
     Dosage: 600MG  BID  PO
     Route: 048
     Dates: start: 20000829, end: 20060914

REACTIONS (7)
  - ABASIA [None]
  - BLOOD CHOLESTEROL INCREASED [None]
  - DIABETES MELLITUS [None]
  - DIARRHOEA [None]
  - HYPOKINESIA [None]
  - RHABDOMYOLYSIS [None]
  - SKIN INFLAMMATION [None]
